FAERS Safety Report 17169495 (Version 2)
Quarter: 2022Q2

REPORT INFORMATION
  Report Type: Spontaneous
  Country: FR (occurrence: FR)
  Receive Date: 20191218
  Receipt Date: 20220421
  Transmission Date: 20220721
  Serious: Yes (Hospitalization)
  Sender: FDA-Public Use
  Company Number: None

PATIENT
  Age: 86 Year
  Sex: Male
  Weight: 112 kg

DRUGS (2)
  1. AMOXICILLIN [Suspect]
     Active Substance: AMOXICILLIN
     Indication: Skin wound
     Dosage: 3 G, QD
     Route: 048
     Dates: start: 20190916, end: 20190919
  2. CLAVULANIC ACID [Suspect]
     Active Substance: CLAVULANIC ACID
     Indication: Skin wound
     Dosage: 3 G, QD
     Route: 048
     Dates: start: 20190916, end: 20190919

REACTIONS (5)
  - Blister [Recovered/Resolved]
  - Erythema [Recovered/Resolved]
  - Rash scarlatiniform [Recovered/Resolved]
  - Skin exfoliation [Recovered/Resolved]
  - Erythema [Recovered/Resolved]

NARRATIVE: CASE EVENT DATE: 20190919
